FAERS Safety Report 4995027-5 (Version None)
Quarter: 2006Q2

REPORT INFORMATION
  Report Type: 
  Country: None (occurrence: None)
  Receive Date: 20060508
  Receipt Date: 20060328
  Transmission Date: 20061013
  Serious: Yes (Hospitalization)
  Sender: FDA-Public Use
  Company Number: JP-JPN-A200601085

PATIENT
  Age: 80 Year
  Sex: Male
  Weight: 60 kg

DRUGS (10)
  1. VALTREX [Suspect]
     Indication: HERPES ZOSTER
     Dosage: 500MG THREE TIMES PER DAY
     Route: 048
     Dates: start: 20060324, end: 20060324
  2. ALEVIATIN [Suspect]
     Indication: EPILEPSY
     Dosage: 300MG PER DAY
     Route: 065
  3. SELBEX [Concomitant]
     Indication: GASTRITIS
     Dosage: .5G TWICE PER DAY
     Route: 048
  4. NORVASC [Concomitant]
     Route: 048
  5. AMLODIN [Concomitant]
     Indication: HYPERTENSION
     Dosage: 5MG TWICE PER DAY
     Route: 048
  6. LASIX [Concomitant]
     Indication: HYPERTENSION
     Dosage: 10MG PER DAY
     Route: 048
  7. CLOBAZAM [Concomitant]
     Indication: EPILEPSY
     Dosage: .25G PER DAY
     Route: 048
  8. PURSENNID [Concomitant]
     Indication: CONSTIPATION
     Dosage: 24MG PER DAY
     Route: 048
  9. KAKKON-TO [Concomitant]
     Indication: HERPES ZOSTER
     Dosage: 2.5G THREE TIMES PER DAY
     Route: 048
     Dates: start: 20060324, end: 20060324
  10. ZOVIRAX [Concomitant]
     Route: 042

REACTIONS (7)
  - DELIRIUM [None]
  - DEPRESSED LEVEL OF CONSCIOUSNESS [None]
  - DYSARTHRIA [None]
  - DYSSTASIA [None]
  - SOMNOLENCE [None]
  - TOXIC INDUCED ENCEPHALOPATHY [None]
  - URINARY INCONTINENCE [None]
